FAERS Safety Report 17201720 (Version 1)
Quarter: 2020Q1

REPORT INFORMATION
  Report Type: Spontaneous
  Country: US (occurrence: US)
  Receive Date: 20191224
  Receipt Date: 20191224
  Transmission Date: 20200409
  Serious: Yes (Other)
  Sender: FDA-Public Use
  Company Number: None

PATIENT
  Age: 67 Year
  Sex: Female
  Weight: 63 kg

DRUGS (22)
  1. MAG-TAB SR [Concomitant]
     Active Substance: MAGNESIUM LACTATE
  2. FLOVENT HFA [Concomitant]
     Active Substance: FLUTICASONE PROPIONATE
  3. TRAZODONE [Concomitant]
     Active Substance: TRAZODONE HYDROCHLORIDE
  4. ESCITALOPRAM [Concomitant]
     Active Substance: ESCITALOPRAM OXALATE
  5. OXYCODONE [Concomitant]
     Active Substance: OXYCODONE
  6. LORAZEPAM. [Concomitant]
     Active Substance: LORAZEPAM
  7. BASAGLAR [Concomitant]
     Active Substance: INSULIN GLARGINE
  8. FLUTICASONE. [Concomitant]
     Active Substance: FLUTICASONE
  9. DEXAMETHASONE. [Concomitant]
     Active Substance: DEXAMETHASONE
  10. MAGNESIUM OXIDE. [Concomitant]
     Active Substance: MAGNESIUM OXIDE
  11. OMEPRAZOLE. [Concomitant]
     Active Substance: OMEPRAZOLE
  12. CYCLOPHOSPHAMIDE. [Suspect]
     Active Substance: CYCLOPHOSPHAMIDE
     Indication: OVARIAN CANCER
     Route: 048
     Dates: start: 20180913, end: 20191224
  13. XARELTO [Concomitant]
     Active Substance: RIVAROXABAN
  14. LORATADINE. [Concomitant]
     Active Substance: LORATADINE
  15. NOVOLOG [Concomitant]
     Active Substance: INSULIN ASPART
  16. LISINOPRIL. [Concomitant]
     Active Substance: LISINOPRIL
  17. METOCLOPRAMIDE. [Concomitant]
     Active Substance: METOCLOPRAMIDE
  18. VENTOLIN HFA [Concomitant]
     Active Substance: ALBUTEROL SULFATE
  19. LYRICA [Concomitant]
     Active Substance: PREGABALIN
  20. LEVOFLOXACIN. [Concomitant]
     Active Substance: LEVOFLOXACIN
  21. PROCHLORPERAZINE. [Concomitant]
     Active Substance: PROCHLORPERAZINE
  22. RITALIN [Concomitant]
     Active Substance: METHYLPHENIDATE HYDROCHLORIDE

REACTIONS (1)
  - Disease progression [None]

NARRATIVE: CASE EVENT DATE: 20191224
